FAERS Safety Report 15352479 (Version 1)
Quarter: 2018Q3

REPORT INFORMATION
  Report Type: Spontaneous
  Country: ES (occurrence: ES)
  Receive Date: 20180905
  Receipt Date: 20180905
  Transmission Date: 20181010
  Serious: Yes (Other)
  Sender: FDA-Public Use
  Company Number: ES-SA-2018SA235376

PATIENT
  Sex: Male
  Weight: 145 kg

DRUGS (1)
  1. LANTUS [Suspect]
     Active Substance: INSULIN GLARGINE
     Indication: TYPE 2 DIABETES MELLITUS
     Dosage: UNK, UNK
     Route: 058
     Dates: start: 20180712

REACTIONS (3)
  - Anal haemorrhage [Unknown]
  - Irritable bowel syndrome [Unknown]
  - Bowel movement irregularity [Unknown]
